FAERS Safety Report 4439893-0 (Version None)
Quarter: 2004Q3

REPORT INFORMATION
  Report Type: 
  Country: None (occurrence: None)
  Receive Date: 20040831
  Receipt Date: 20040816
  Transmission Date: 20050211
  Serious: Yes (Hospitalization)
  Sender: FDA-Public Use
  Company Number: 04H-163-0271482-00

PATIENT
  Age: 52 Year
  Sex: Female

DRUGS (2)
  1. AMINOSYN SOLUTION (AMINOSYN) (AMINOSYN) (AMINOSYN) [Suspect]
     Indication: PARENTERAL NUTRITION
     Dosage: SEE IMAGE
     Route: 042
  2. ACIVICIN [Suspect]
     Indication: COLON CANCER
     Dosage: 50 MG/M2/DAY, OVER 72 HRS. EVERY 3 WEEKS, INTRAVENOUS
     Route: 042

REACTIONS (9)
  - ACUTE RESPIRATORY DISTRESS SYNDROME [None]
  - BONE MARROW DEPRESSION [None]
  - DRUG TOXICITY [None]
  - LUNG INFILTRATION [None]
  - NEUROTOXICITY [None]
  - NEUTROPENIA [None]
  - PNEUMONIA [None]
  - PYREXIA [None]
  - THROMBOCYTOPENIA [None]
